FAERS Safety Report 5487876-4 (Version None)
Quarter: 2007Q3

REPORT INFORMATION
  Report Type: 
  Country: None (occurrence: None)
  Receive Date: 20070925
  Receipt Date: 20070613
  Transmission Date: 20080115
  Serious: No
  Sender: FDA-Public Use
  Company Number: 2007US001373

PATIENT
  Age: 45 Year
  Sex: Female

DRUGS (2)
  1. VESICARE [Suspect]
     Dosage: 5 MG, UID/QD, ORAL
     Route: 048
     Dates: start: 20070401
  2. PROGESTERONE [Concomitant]

REACTIONS (3)
  - FATIGUE [None]
  - LETHARGY [None]
  - SOMNOLENCE [None]
